FAERS Safety Report 12160249 (Version 2)
Quarter: 2016Q2

REPORT INFORMATION
  Report Type: Spontaneous
  Country: US (occurrence: US)
  Receive Date: 20160308
  Receipt Date: 20160408
  Transmission Date: 20160815
  Serious: No
  Sender: FDA-Public Use
  Company Number: US-TOLMAR INC.-1048802

PATIENT
  Age: 49 Year
  Sex: Male

DRUGS (1)
  1. DICLOFENAC SODIUM GEL, 3% [Suspect]
     Active Substance: DICLOFENAC SODIUM
     Indication: INFLAMMATION
     Route: 061
     Dates: start: 2016

REACTIONS (5)
  - Drug dispensing error [Recovered/Resolved]
  - Burning sensation [Recovered/Resolved]
  - Application site pruritus [None]
  - Application site pain [None]
  - Pruritus [Recovered/Resolved]

NARRATIVE: CASE EVENT DATE: 2016
